FAERS Safety Report 9748619 (Version 1)
Quarter: 2013Q4

REPORT INFORMATION
  Report Type: Spontaneous
  Country: GB (occurrence: None)
  Receive Date: 20131209
  Receipt Date: 20131209
  Transmission Date: 20140711
  Serious: Yes (Death, Other)
  Sender: FDA-Public Use
  Company Number: GB-ALKEM-000386

PATIENT
  Sex: Male

DRUGS (2)
  1. MYCOPHENOLATE MOFETIL [Suspect]
     Indication: PRODUCT USED FOR UNKNOWN INDICATION
  2. NPLATE [Suspect]
     Indication: IMMUNE THROMBOCYTOPENIC PURPURA

REACTIONS (9)
  - Blood albumin decreased [None]
  - Duodenal ulcer [None]
  - Gout [None]
  - Hypertension [None]
  - Immune thrombocytopenic purpura [None]
  - Oedema peripheral [None]
  - Pneumonia [None]
  - Protein-losing gastroenteropathy [None]
  - Malaise [None]
